FAERS Safety Report 9664043 (Version 3)
Quarter: 2013Q4

REPORT INFORMATION
  Report Type: Spontaneous
  Country: US (occurrence: US)
  Receive Date: 20131101
  Receipt Date: 20131126
  Transmission Date: 20140711
  Serious: Yes (Other)
  Sender: FDA-Public Use
  Company Number: US-PFIZER INC-2013309870

PATIENT
  Age: 29 Year
  Sex: Female

DRUGS (3)
  1. CELLCEPT [Suspect]
     Indication: LUPUS NEPHRITIS
     Dosage: 1000 MG, 2X/DAY
     Route: 048
     Dates: start: 201106, end: 20131025
  2. CELLCEPT [Suspect]
     Indication: PROTEINURIA
  3. COUMADIN [Suspect]
     Indication: ANTIPHOSPHOLIPID SYNDROME
     Dosage: DAILY
     Route: 048
     Dates: start: 2008

REACTIONS (2)
  - Vaginal haemorrhage [Unknown]
  - Human chorionic gonadotropin decreased [Recovered/Resolved]
